FAERS Safety Report 5750752-3 (Version None)
Quarter: 2008Q2

REPORT INFORMATION
  Report Type: 
  Country: None (occurrence: None)
  Receive Date: 20080523
  Receipt Date: 20080523
  Transmission Date: 20081010
  Serious: Yes (Life-Threatening, Other)
  Sender: FDA-Public Use
  Company Number: None

PATIENT
  Age: 60 Year
  Sex: Female

DRUGS (1)
  1. HUMIRA [Suspect]
     Indication: BEHCET'S SYNDROME
     Dosage: 40 MG Q 2 WK SQ
     Route: 058
     Dates: start: 20070905, end: 20080201

REACTIONS (4)
  - LIP SWELLING [None]
  - SWELLING FACE [None]
  - URTICARIA [None]
  - WHEEZING [None]
